FAERS Safety Report 10142701 (Version 1)
Quarter: 2014Q2

REPORT INFORMATION
  Report Type: Spontaneous
  Country: MX (occurrence: None)
  Receive Date: 20140425
  Receipt Date: 20140425
  Transmission Date: 20141212
  Serious: Yes (Hospitalization)
  Sender: FDA-Public Use
  Company Number: PRED20140022

PATIENT
  Age: 16 Year
  Sex: Male

DRUGS (4)
  1. PREDNISONE TABLETS (PREDNISONE) (UNKNOWN) (PREDNISONE) [Suspect]
     Indication: ACUTE LYMPHOCYTIC LEUKAEMIA
  2. MITOXANTRONE (MITOXANTRONE) (UNKNOWN) (MITOXANTRONE) [Suspect]
     Indication: ACUTE LYMPHOCYTIC LEUKAEMIA
  3. VINCRISTINE (VINCRISTINE) (UNKNOWN) (VINCRISTINE) [Suspect]
     Indication: ACUTE LYMPHOCYTIC LEUKAEMIA
  4. L-ASPARAGINASE (ASPARAGINASE) (UNKNOWN) (ASPARAGINASE) [Suspect]
     Indication: ACUTE LYMPHOCYTIC LEUKAEMIA

REACTIONS (8)
  - Diabetic ketoacidosis [None]
  - Abdominal pain [None]
  - Nausea [None]
  - Vomiting [None]
  - Decreased appetite [None]
  - Haematemesis [None]
  - Hyperamylasaemia [None]
  - Mallory-Weiss syndrome [None]
